FAERS Safety Report 24917290 (Version 2)
Quarter: 2025Q1

REPORT INFORMATION
  Report Type: Spontaneous
  Country: RO (occurrence: RO)
  Receive Date: 20250203
  Receipt Date: 20250213
  Transmission Date: 20250408
  Serious: Yes (Other)
  Sender: TEVA
  Company Number: RO-TEVA-VS-3293143

PATIENT
  Age: 53 Year
  Sex: Female

DRUGS (4)
  1. IRINOTECAN [Suspect]
     Active Substance: IRINOTECAN
     Indication: Oesophageal squamous cell carcinoma stage II
     Dosage: INFUSIONS OVER 90 MINUTES, ON DAYS 1 AND 3
     Route: 065
     Dates: start: 2023
  2. IRINOTECAN [Suspect]
     Active Substance: IRINOTECAN
     Indication: Oesophageal squamous cell carcinoma stage II
     Dosage: INFUSIONS OVER 90 MINUTES, ON DAYS 1 AND 3
     Route: 065
     Dates: start: 2023
  3. LEUCOVORIN [Concomitant]
     Active Substance: LEUCOVORIN\LEUCOVORIN CALCIUM
     Indication: Oesophageal squamous cell carcinoma stage III
     Dosage: OVER 120 MINUTES
     Dates: start: 2023
  4. FLUOROURACIL [Concomitant]
     Active Substance: FLUOROURACIL
     Indication: Oesophageal squamous cell carcinoma stage II
     Dosage: OVER 48H
     Dates: start: 2023

REACTIONS (8)
  - Anaphylactic reaction [Recovering/Resolving]
  - Rhinorrhoea [Recovering/Resolving]
  - Abdominal pain [Recovering/Resolving]
  - Angioedema [Recovering/Resolving]
  - Dysphagia [Recovering/Resolving]
  - Vision blurred [Recovering/Resolving]
  - Tachycardia [Recovering/Resolving]
  - Hypotension [Recovering/Resolving]

NARRATIVE: CASE EVENT DATE: 20231025
